FAERS Safety Report 11009371 (Version 1)
Quarter: 2015Q2

REPORT INFORMATION
  Report Type: Spontaneous
  Country: US (occurrence: None)
  Receive Date: 20150409
  Receipt Date: 20150409
  Transmission Date: 20150821
  Serious: No
  Sender: FDA-Public Use
  Company Number: None

PATIENT
  Age: 6 Year
  Sex: Male
  Weight: 20.87 kg

DRUGS (1)
  1. OXYBUTYNIN SYRUP, 5ML [Suspect]
     Active Substance: OXYBUTYNIN
     Indication: BLADDER SPASM
     Route: 048
     Dates: start: 20150116, end: 20150118

REACTIONS (4)
  - Micturition urgency [None]
  - Dysuria [None]
  - Erythema [None]
  - Feeling hot [None]

NARRATIVE: CASE EVENT DATE: 20150118
